FAERS Safety Report 16717908 (Version 2)
Quarter: 2019Q3

REPORT INFORMATION
  Report Type: Spontaneous
  Country: US (occurrence: US)
  Receive Date: 20190819
  Receipt Date: 20190826
  Transmission Date: 20191005
  Serious: No
  Sender: FDA-Public Use
  Company Number: PHEH2019US033631

PATIENT
  Age: 59 Year
  Sex: Female

DRUGS (6)
  1. TRAZODONE [Suspect]
     Active Substance: TRAZODONE HYDROCHLORIDE
     Indication: DYSPNOEA
  2. GLATOPA [Suspect]
     Active Substance: GLATIRAMER ACETATE
     Indication: ORAL DISORDER
  3. TRAZODONE [Suspect]
     Active Substance: TRAZODONE HYDROCHLORIDE
     Indication: ORAL DISORDER
  4. GLATOPA [Suspect]
     Active Substance: GLATIRAMER ACETATE
     Indication: DRY MOUTH
     Dosage: 40 MG, UNK
     Route: 065
     Dates: start: 20190811, end: 20190811
  5. TRAZODONE [Suspect]
     Active Substance: TRAZODONE HYDROCHLORIDE
     Indication: DRY MOUTH
     Dosage: UNK
     Route: 065
  6. GLATOPA [Suspect]
     Active Substance: GLATIRAMER ACETATE
     Indication: DYSPNOEA

REACTIONS (5)
  - Oral disorder [Unknown]
  - Product use in unapproved indication [Unknown]
  - Dry mouth [Unknown]
  - Dyspnoea [Unknown]
  - Condition aggravated [Unknown]

NARRATIVE: CASE EVENT DATE: 20190811
